FAERS Safety Report 4661734-7 (Version None)
Quarter: 2005Q2

REPORT INFORMATION
  Report Type: 
  Country: None (occurrence: None)
  Receive Date: 20050513
  Receipt Date: 20050416
  Transmission Date: 20051028
  Serious: Yes (Other)
  Sender: FDA-Public Use
  Company Number: GB-ROCHE-402046

PATIENT
  Age: 65 Year
  Sex: Female
  Weight: 94.3 kg

DRUGS (5)
  1. XENICAL [Suspect]
     Indication: OBESITY
     Route: 048
     Dates: start: 20050322, end: 20050418
  2. STATIN [Concomitant]
     Dosage: SECONDARY INDICATION OF ISCHEMIC HEART DISEASE
  3. ACE INHIBITOR [Concomitant]
     Dosage: SECONDARY INDICATION OF ISCHEMIC HEART DISEASE
  4. DIURETICS NOS [Concomitant]
     Dosage: SECONDARY INDICATION OF ISCHEMIC HEART DISEASE
  5. UNSPECIFIED DRUG [Concomitant]
     Dosage: DRUG NAME REPORTED AS PPI

REACTIONS (2)
  - ABDOMINAL PAIN UPPER [None]
  - CONSTIPATION [None]
